FAERS Safety Report 12885307 (Version 1)
Quarter: 2016Q4

REPORT INFORMATION
  Report Type: Spontaneous
  Country: FR (occurrence: FR)
  Receive Date: 20161026
  Receipt Date: 20161026
  Transmission Date: 20170207
  Serious: Yes (Death, Hospitalization, Other)
  Sender: FDA-Public Use
  Company Number: FR-PFIZER INC-2016492799

PATIENT
  Age: 87 Year
  Sex: Female
  Weight: 85 kg

DRUGS (4)
  1. MIANSERIN HYDROCHLORIDE [Concomitant]
     Active Substance: MIANSERIN HYDROCHLORIDE
     Dosage: UNK
     Route: 048
  2. HALDOL [Concomitant]
     Active Substance: HALOPERIDOL
     Dosage: UNK
     Route: 048
  3. SERTRALINE HYDROCHLORIDE. [Concomitant]
     Active Substance: SERTRALINE HYDROCHLORIDE
     Dosage: UNK
     Route: 048
  4. XANAX [Suspect]
     Active Substance: ALPRAZOLAM
     Dosage: UNK
     Route: 048

REACTIONS (9)
  - Agitation [Unknown]
  - Dyspnoea [Fatal]
  - Hypercapnic coma [Unknown]
  - Cyanosis [Unknown]
  - Pleural effusion [Unknown]
  - Overdose [Unknown]
  - Renal tubular necrosis [Unknown]
  - Acute respiratory failure [Fatal]
  - Somnolence [Unknown]

NARRATIVE: CASE EVENT DATE: 20160708
